FAERS Safety Report 11820556 (Version 2)
Quarter: 2016Q4

REPORT INFORMATION
  Report Type: Spontaneous
  Country: US (occurrence: US)
  Receive Date: 20151210
  Receipt Date: 20161017
  Transmission Date: 20170206
  Serious: No
  Sender: FDA-Public Use
  Company Number: US-JNJFOC-20150611185

PATIENT
  Sex: Male

DRUGS (5)
  1. TAMSULOSIN [Concomitant]
     Active Substance: TAMSULOSIN
  2. METOPROLOL. [Concomitant]
     Active Substance: METOPROLOL
  3. IMBRUVICA [Suspect]
     Active Substance: IBRUTINIB
     Indication: CHRONIC LYMPHOCYTIC LEUKAEMIA
     Route: 048
     Dates: start: 20150307
  4. GLIMEPIRIDE. [Concomitant]
     Active Substance: GLIMEPIRIDE
  5. FINASTERIDE. [Concomitant]
     Active Substance: FINASTERIDE

REACTIONS (7)
  - Haemoglobin increased [Unknown]
  - White blood cell count increased [Unknown]
  - Platelet count increased [Unknown]
  - Malaise [Unknown]
  - Platelet count decreased [Unknown]
  - Sciatica [Not Recovered/Not Resolved]
  - Arthropod bite [Unknown]

NARRATIVE: CASE EVENT DATE: 2015
